FAERS Safety Report 24198231 (Version 1)
Quarter: 2024Q3

REPORT INFORMATION
  Report Type: Spontaneous
  Country: DE (occurrence: DE)
  Receive Date: 20240812
  Receipt Date: 20240812
  Transmission Date: 20241017
  Serious: Yes (Death, Other)
  Sender: MSN LABORATORIES
  Company Number: None

PATIENT

DRUGS (1)
  1. ROSUVASTATIN [Suspect]
     Active Substance: ROSUVASTATIN\ROSUVASTATIN CALCIUM
     Indication: Dyslipidaemia
     Dosage: 40 MG
     Route: 048
     Dates: end: 20240719

REACTIONS (4)
  - Hyperkalaemia [Fatal]
  - Lactic acidosis [Fatal]
  - Rhabdomyolysis [Fatal]
  - Blood lactic acid increased [Unknown]

NARRATIVE: CASE EVENT DATE: 20240719
